FAERS Safety Report 13641220 (Version 1)
Quarter: 2017Q2

REPORT INFORMATION
  Report Type: Report from Study
  Country: DE (occurrence: DE)
  Receive Date: 20170612
  Receipt Date: 20170612
  Transmission Date: 20170830
  Serious: Yes (Hospitalization)
  Sender: FDA-Public Use
  Company Number: DE-DRREDDYS-GER/GER/17/0091171

PATIENT
  Age: 77 Year
  Sex: Male
  Weight: 99 kg

DRUGS (3)
  1. ZOLEDRONSAURE BETA 4 MG/5 ML KONZENTRAT ZUR HERSTELLUNG EINER INFUSION [Suspect]
     Active Substance: ZOLEDRONIC ACID
     Route: 042
     Dates: start: 20150623, end: 20150623
  2. ZOLEDRONSAURE BETA 4 MG/5 ML KONZENTRAT ZUR HERSTELLUNG EINER INFUSION [Suspect]
     Active Substance: ZOLEDRONIC ACID
     Route: 042
     Dates: start: 20160118, end: 20160118
  3. ZOLEDRONSAURE BETA 4 MG/5 ML KONZENTRAT ZUR HERSTELLUNG EINER INFUSION [Suspect]
     Active Substance: ZOLEDRONIC ACID
     Indication: PROSTATE CANCER
     Route: 042
     Dates: start: 20150323, end: 20150323

REACTIONS (2)
  - Haematuria [Recovered/Resolved]
  - Cardiac failure [Recovered/Resolved]

NARRATIVE: CASE EVENT DATE: 20151023
